FAERS Safety Report 6401147-0 (Version None)
Quarter: 2009Q4

REPORT INFORMATION
  Report Type: 
  Country: None (occurrence: None)
  Receive Date: 20091009
  Receipt Date: 20090928
  Transmission Date: 20100525
  Serious: Yes (Hospitalization, Other)
  Sender: FDA-Public Use
  Company Number: 230114K09IRL

PATIENT
  Sex: Female

DRUGS (2)
  1. REBIF [Suspect]
     Dosage: 44
     Dates: start: 20030226, end: 20040612
  2. REBIF [Suspect]
     Dosage: 44
     Dates: start: 20050610

REACTIONS (7)
  - ASPIRATION [None]
  - DIPLOPIA [None]
  - FATIGUE [None]
  - HEADACHE [None]
  - MALAISE [None]
  - ROAD TRAFFIC ACCIDENT [None]
  - VOMITING [None]
